FAERS Safety Report 16101101 (Version 1)
Quarter: 2019Q1

REPORT INFORMATION
  Report Type: Spontaneous
  Country: SG (occurrence: SG)
  Receive Date: 20190321
  Receipt Date: 20190321
  Transmission Date: 20190418
  Serious: Yes (Death, Hospitalization)
  Sender: FDA-Public Use
  Company Number: SG-ALLERGAN-1912006US

PATIENT
  Sex: Female

DRUGS (1)
  1. BOTULINUM TOXIN TYPE A UNK [Suspect]
     Active Substance: BOTULINUM TOXIN TYPE A
     Indication: PRODUCT USED FOR UNKNOWN INDICATION
     Dosage: UNK, SINGLE
     Route: 030
     Dates: start: 20190308, end: 20190308

REACTIONS (6)
  - Cardiac arrest [Unknown]
  - Loss of consciousness [Unknown]
  - Chills [Unknown]
  - Anaphylactic shock [Unknown]
  - Cardiac failure [Fatal]
  - Coma [Unknown]

NARRATIVE: CASE EVENT DATE: 20190308
